FAERS Safety Report 24837442 (Version 4)
Quarter: 2025Q3

REPORT INFORMATION
  Report Type: Report from Study
  Country: JP (occurrence: JP)
  Receive Date: 20250113
  Receipt Date: 20250715
  Transmission Date: 20251021
  Serious: Yes (Other)
  Sender: ALEXION PHARMACEUTICALS
  Company Number: JP-ASTRAZENECA-240047171_011820_P_1

PATIENT
  Age: 18 Year
  Sex: Male
  Weight: 65.2 kg

DRUGS (2)
  1. KOSELUGO [Suspect]
     Active Substance: SELUMETINIB
     Indication: Neurofibromatosis
     Dosage: 45 MILLIGRAM, BID, MOSTLY NOT ON AN EMPTY STOMACH (IN THE MORNING)
     Dates: start: 20231027, end: 20240510
  2. KOSELUGO [Suspect]
     Active Substance: SELUMETINIB
     Dosage: 35 MILLIGRAM, BID
     Dates: start: 20240510

REACTIONS (9)
  - Cytopenia [Recovered/Resolved]
  - Dermatitis acneiform [Not Recovered/Not Resolved]
  - Blood creatine phosphokinase increased [Not Recovered/Not Resolved]
  - Aspartate aminotransferase increased [Recovered/Resolved]
  - Alanine aminotransferase increased [Recovered/Resolved]
  - Blood lactate dehydrogenase increased [Recovered/Resolved]
  - Platelet count increased [Recovering/Resolving]
  - White blood cell count increased [Recovering/Resolving]
  - Diarrhoea [Recovered/Resolved]

NARRATIVE: CASE EVENT DATE: 20231027
